FAERS Safety Report 5239200-X (Version None)
Quarter: 2007Q1

REPORT INFORMATION
  Report Type: 
  Country: None (occurrence: None)
  Receive Date: 20061208
  Receipt Date: 20051025
  Transmission Date: 20070707
  Serious: Yes (Other)
  Sender: FDA-Public Use
  Company Number: 2005UW13576

PATIENT
  Age: 56 Year
  Sex: Female
  Weight: 89.811 kg

DRUGS (7)
  1. CRESTOR [Suspect]
     Indication: BLOOD CHOLESTEROL INCREASED
     Dosage: 10 MG DAILY PO
     Route: 048
     Dates: end: 20050822
  2. CLONAZEPAM [Concomitant]
  3. TOPROL-XL [Concomitant]
  4. CENTRUM SILVER [Concomitant]
  5. CALCIUM [Concomitant]
  6. ALLEGRA-D /01367401/ [Concomitant]
  7. TYLENOL [Concomitant]

REACTIONS (10)
  - ARTHRALGIA [None]
  - CHEST PAIN [None]
  - CONVERSION DISORDER [None]
  - DYSKINESIA [None]
  - HYPERTENSION [None]
  - HYPOAESTHESIA [None]
  - MUSCLE SPASMS [None]
  - MUSCLE TIGHTNESS [None]
  - PARAESTHESIA [None]
  - THYROID FUNCTION TEST ABNORMAL [None]
